FAERS Safety Report 8275184-8 (Version None)
Quarter: 2012Q2

REPORT INFORMATION
  Report Type: 
  Country: None (occurrence: None)
  Receive Date: 20120411
  Receipt Date: 20120404
  Transmission Date: 20120825
  Serious: Yes (Other)
  Sender: FDA-Public Use
  Company Number: PHHY2012CH028953

PATIENT
  Age: 85 Year
  Sex: Female

DRUGS (1)
  1. METHOTREXATE [Suspect]
     Indication: RHEUMATOID ARTHRITIS
     Dosage: 10 MG, QW
     Dates: start: 19970101

REACTIONS (12)
  - NORMOCHROMIC NORMOCYTIC ANAEMIA [None]
  - SPLENOMEGALY [None]
  - INTERSTITIAL LUNG DISEASE [None]
  - HYPOXIA [None]
  - PANCYTOPENIA [None]
  - ASCITES [None]
  - HEPATIC CIRRHOSIS [None]
  - LEUKOPENIA [None]
  - RESTRICTIVE PULMONARY DISEASE [None]
  - THROMBOCYTOPENIA [None]
  - PORTAL HYPERTENSION [None]
  - VARICES OESOPHAGEAL [None]
